FAERS Safety Report 13165642 (Version 2)
Quarter: 2017Q1

REPORT INFORMATION
  Report Type: Spontaneous
  Country: CH (occurrence: CH)
  Receive Date: 20170131
  Receipt Date: 20170208
  Transmission Date: 20170428
  Serious: Yes (Hospitalization)
  Sender: FDA-Public Use
  Company Number: CH-ACCORD-047909

PATIENT
  Age: 79 Year
  Sex: Male

DRUGS (12)
  1. SIMVASTATIN. [Suspect]
     Active Substance: SIMVASTATIN
     Indication: PRODUCT USED FOR UNKNOWN INDICATION
  2. ATORVASTATIN/ATORVASTATIN CALCIUM [Concomitant]
  3. LISINOPRIL/LISINOPRIL DIHYDRATE [Concomitant]
  4. METOPROLOL. [Concomitant]
     Active Substance: METOPROLOL
  5. INSULIN [Concomitant]
     Active Substance: INSULIN NOS
  6. ENOXAPARIN/ENOXAPARIN SODIUM [Concomitant]
  7. RIVAROXABAN [Interacting]
     Active Substance: RIVAROXABAN
     Indication: EMBOLIC STROKE
     Dates: start: 201509
  8. LEVOTHYROXINE/LEVOTHYROXINE SODIUM [Concomitant]
  9. ENALAPRIL/ENALAPRIL MALEATE [Concomitant]
  10. ESOMEPRAZOLE/ESOMEPRAZOLE MAGNESIUM/ESOMEPRAZOLE SODIUM [Concomitant]
  11. SODIUM PICOSULFATE [Concomitant]
     Active Substance: SODIUM PICOSULFATE
  12. SPIRONOLACTONE. [Concomitant]
     Active Substance: SPIRONOLACTONE

REACTIONS (5)
  - Drug clearance decreased [Unknown]
  - Drug interaction [Unknown]
  - Acute myocardial infarction [Unknown]
  - Gastrointestinal haemorrhage [Unknown]
  - Normochromic normocytic anaemia [Recovering/Resolving]

NARRATIVE: CASE EVENT DATE: 20151215
